FAERS Safety Report 12676609 (Version 3)
Quarter: 2016Q4

REPORT INFORMATION
  Report Type: Spontaneous
  Country: US (occurrence: US)
  Receive Date: 20160823
  Receipt Date: 20161213
  Transmission Date: 20170207
  Serious: Yes (Hospitalization)
  Sender: FDA-Public Use
  Company Number: US-PFIZER INC-2016396626

PATIENT
  Age: 78 Year
  Sex: Female

DRUGS (24)
  1. VITAMIN B12 [Concomitant]
     Active Substance: CYANOCOBALAMIN
     Indication: BONE DISORDER
     Dosage: UNK UNK, MONTHLY
  2. CALCIUM+VITAMIN D3 [Concomitant]
     Indication: BONE DISORDER
     Dosage: 600 MG, 2X/DAY
     Dates: start: 201502
  3. TURMERIC [Concomitant]
     Active Substance: TURMERIC
     Indication: ANTIOXIDANT THERAPY
     Dosage: 538 MG, 1X/DAY
     Dates: start: 2015
  4. LIDODERM [Concomitant]
     Active Substance: LIDOCAINE
     Indication: PAIN
     Dosage: UNK UNK, AS NEEDED (PLACES PATCH ON PLACES THAT DON^T BEND,USES UP TO 3 A DAY AS NEEDED)
  5. OXYCODONE AND ACETAMINOPHEN [Concomitant]
     Active Substance: ACETAMINOPHEN\OXYCODONE HYDROCHLORIDE
     Indication: PAIN
     Dosage: UNK (OXYCODONE HYDROCHLORIDE: 5MG PARACETAMOL: 325MG)EVERY 4 HOURS
  6. LOMOTIL [Concomitant]
     Active Substance: ATROPINE SULFATE\DIPHENOXYLATE HYDROCHLORIDE
     Indication: DIARRHOEA
     Dosage: 2 DF, AS NEEDED
  7. HYDROXYZINE HCL [Concomitant]
     Active Substance: HYDROXYZINE HYDROCHLORIDE
     Indication: HYPERSENSITIVITY
     Dosage: 25 MG, AS NEEDED (1 TABLET EVERY 8 HOURS AS NEEDED)
  8. LETROZOLE. [Concomitant]
     Active Substance: LETROZOLE
     Dosage: UNK UNK, DAILY
     Dates: start: 2015
  9. VITAMIN D3 [Concomitant]
     Active Substance: CHOLECALCIFEROL
     Indication: BONE DISORDER
     Dosage: 1000 IU, 1X/DAY
     Dates: start: 2015
  10. VITAMIN D3 [Concomitant]
     Active Substance: CHOLECALCIFEROL
     Indication: IMMUNE ENHANCEMENT THERAPY
     Dosage: UNK UNK, DAILY
     Dates: start: 2015
  11. VOLTAREN [Concomitant]
     Active Substance: DICLOFENAC SODIUM
     Indication: ARTHRALGIA
     Dosage: UNK UNK, DAILY
     Route: 061
  12. OXYCODONE AND ACETAMINOPHEN [Concomitant]
     Active Substance: ACETAMINOPHEN\OXYCODONE HYDROCHLORIDE
     Dosage: UNK (OXYCODONE: 10MG; ACETAMINOPHEN: 325MG), (NIGHTLY)
  13. TIZANIDINE. [Concomitant]
     Active Substance: TIZANIDINE
     Indication: PAIN
  14. IBRANCE [Suspect]
     Active Substance: PALBOCICLIB
     Indication: BREAST CANCER METASTATIC
     Dosage: 125 MG, CYCLIC (ONCE A DAY, ON FOR 21 DAYS AND OFF FOR 7 DAYS)/(ONCE FOR 21 DAYS/7 OFF CYCLE)
     Dates: start: 201501
  15. LETROZOLE. [Concomitant]
     Active Substance: LETROZOLE
     Indication: BREAST CANCER
     Dosage: 2.5 MG, 1X/DAY
     Dates: start: 201502
  16. SYNTHROID [Concomitant]
     Active Substance: LEVOTHYROXINE SODIUM
     Dosage: UNK UNK, DAILY
  17. TURMERIC [Concomitant]
     Active Substance: TURMERIC
     Dosage: UNK UNK, DAILY
     Dates: start: 2015
  18. HYDROXYZINE HCL [Concomitant]
     Active Substance: HYDROXYZINE HYDROCHLORIDE
     Indication: PRURITUS
  19. BUTRANS [Concomitant]
     Active Substance: BUPRENORPHINE
     Indication: PAIN
     Dosage: UNK (15 MCG/HR; 1 PATCH EVERY 7 DAYS )
     Route: 062
  20. CALCIUM+VITAMIN D3 [Concomitant]
     Dosage: UNK UNK, DAILY
     Dates: start: 2015
  21. LOMOTIL [Concomitant]
     Active Substance: ATROPINE SULFATE\DIPHENOXYLATE HYDROCHLORIDE
     Dosage: 1 DF, AS NEEDED
  22. TIZANIDINE. [Concomitant]
     Active Substance: TIZANIDINE
     Indication: MUSCLE SPASMS
     Dosage: 2 MG, 1X/DAY (AT NIGHT), (JUST QUIT TOTALLY USELESS)
     Dates: end: 20160808
  23. NASAL SPRAY II [Concomitant]
     Indication: HYPERSENSITIVITY
     Dosage: UNK UNK, AS NEEDED (ONLY USE AS NEEDED)
  24. SYNTHROID [Concomitant]
     Active Substance: LEVOTHYROXINE SODIUM
     Indication: THYROID THERAPY
     Dosage: 125 MG, 1X/DAY

REACTIONS (20)
  - Epistaxis [Not Recovered/Not Resolved]
  - Condition aggravated [Not Recovered/Not Resolved]
  - Skin disorder [Unknown]
  - Skin haemorrhage [Unknown]
  - Alopecia [Not Recovered/Not Resolved]
  - Fatigue [Not Recovered/Not Resolved]
  - Sleep disorder [Not Recovered/Not Resolved]
  - Dry skin [Unknown]
  - Muscle spasms [Not Recovered/Not Resolved]
  - Food craving [Not Recovered/Not Resolved]
  - Decreased appetite [Not Recovered/Not Resolved]
  - Disturbance in attention [Not Recovered/Not Resolved]
  - Scab [Unknown]
  - Nail disorder [Unknown]
  - Ocular hyperaemia [Recovered/Resolved]
  - Arthritis [Unknown]
  - Hot flush [Unknown]
  - Feeling abnormal [Unknown]
  - Pain [Not Recovered/Not Resolved]
  - Pruritus [Unknown]

NARRATIVE: CASE EVENT DATE: 2015
